FAERS Safety Report 5648203-2 (Version None)
Quarter: 2008Q1

REPORT INFORMATION
  Report Type: 
  Country: None (occurrence: None)
  Receive Date: 20080229
  Receipt Date: 20080218
  Transmission Date: 20080703
  Serious: Yes (Hospitalization)
  Sender: FDA-Public Use
  Company Number: SPV1-2008-00356

PATIENT
  Age: 18 Year
  Sex: Male
  Weight: 122.4 kg

DRUGS (5)
  1. ADDERALL XR 30 [Suspect]
     Indication: ATTENTION DEFICIT/HYPERACTIVITY DISORDER
     Dosage: 25 MG, 1X/DAY;QD;ORAL; 30 MG, 1X/DAY:QD, ORAL
     Route: 048
     Dates: start: 20040101, end: 20041201
  2. ADDERALL XR 30 [Suspect]
     Indication: ATTENTION DEFICIT/HYPERACTIVITY DISORDER
     Dosage: 25 MG, 1X/DAY;QD;ORAL; 30 MG, 1X/DAY:QD, ORAL
     Route: 048
     Dates: start: 20070901
  3. DEPAKOTE [Concomitant]
  4. SEROQUEL [Concomitant]
  5. LAMICTAL [Concomitant]

REACTIONS (3)
  - BLOOD CREATINE PHOSPHOKINASE MB ABNORMAL [None]
  - MUSCLE DISORDER [None]
  - OVERDOSE [None]
